FAERS Safety Report 15632533 (Version 1)
Quarter: 2018Q4

REPORT INFORMATION
  Report Type: Spontaneous
  Country: US (occurrence: US)
  Receive Date: 20181119
  Receipt Date: 20181119
  Transmission Date: 20190205
  Serious: Yes (Hospitalization)
  Sender: FDA-Public Use
  Company Number: None

PATIENT
  Age: 61 Year
  Sex: Female

DRUGS (7)
  1. POT CL MICRO TAB [Concomitant]
  2. MULTI-VITE [Concomitant]
  3. STELARA [Suspect]
     Active Substance: USTEKINUMAB
     Indication: CROHN^S DISEASE
     Route: 058
     Dates: start: 20171229
  4. ASPIRIN. [Concomitant]
     Active Substance: ASPIRIN
  5. HYDROCHLOROT [Concomitant]
     Active Substance: HYDROCHLOROTHIAZIDE
  6. FOLIC ACID. [Concomitant]
     Active Substance: FOLIC ACID
  7. SUPER B COMP [Concomitant]

REACTIONS (2)
  - Product dose omission [None]
  - Surgery [None]

NARRATIVE: CASE EVENT DATE: 20181101
